FAERS Safety Report 17183217 (Version 1)
Quarter: 2019Q4

REPORT INFORMATION
  Report Type: Report from Study
  Country: US (occurrence: US)
  Receive Date: 20191220
  Receipt Date: 20191220
  Transmission Date: 20200122
  Serious: Yes (Hospitalization)
  Sender: FDA-Public Use
  Company Number: US-BAUSCH-BL-2019-065367

PATIENT
  Age: 72 Year
  Sex: Female

DRUGS (1)
  1. SILIQ [Suspect]
     Active Substance: BRODALUMAB
     Indication: PSORIASIS
     Dosage: START DATE: ABOUT 3 YEARS AGO FROM DATE OF REPORT, AT WEEKS 0, 1, AND 2 FOLLOWED BY EVERY 2 WEEKS
     Route: 058
     Dates: end: 20191117

REACTIONS (1)
  - Sepsis [Not Recovered/Not Resolved]

NARRATIVE: CASE EVENT DATE: 201911
